FAERS Safety Report 7345134-7 (Version None)
Quarter: 2011Q1

REPORT INFORMATION
  Report Type: 
  Country: None (occurrence: None)
  Receive Date: 20110310
  Receipt Date: 20110211
  Transmission Date: 20110831
  Serious: No
  Sender: FDA-Public Use
  Company Number: US-B.I. PHARMACEUTICALS,INC./RIDGEFIELD-2011-BP-00405BP

PATIENT
  Sex: Female

DRUGS (6)
  1. PRADAXA [Suspect]
     Indication: ATRIAL FIBRILLATION
     Dosage: 300 MG
     Route: 048
     Dates: start: 20101219, end: 20110101
  2. METOPROLOL [Concomitant]
  3. XALATAN [Concomitant]
     Indication: GLAUCOMA
  4. TARCEVA [Concomitant]
     Indication: LUNG NEOPLASM MALIGNANT
     Dates: start: 20100708
  5. CARTIA XT [Concomitant]
  6. WARFARIN [Concomitant]

REACTIONS (11)
  - OROPHARYNGEAL PAIN [None]
  - DYSPHAGIA [None]
  - SENSATION OF FOREIGN BODY [None]
  - NASAL OEDEMA [None]
  - RASH [None]
  - HEAT RASH [None]
  - BREAST DISCOMFORT [None]
  - THROAT IRRITATION [None]
  - NASAL DRYNESS [None]
  - INSOMNIA [None]
  - EPISTAXIS [None]
